FAERS Safety Report 6827816-6 (Version None)
Quarter: 2010Q3

REPORT INFORMATION
  Report Type: 
  Country: None (occurrence: None)
  Receive Date: 20100709
  Receipt Date: 20070129
  Transmission Date: 20110219
  Serious: No
  Sender: FDA-Public Use
  Company Number: US-PFIZER INC-2007008862

PATIENT
  Sex: Male
  Weight: 88.45 kg

DRUGS (3)
  1. CHANTIX [Suspect]
     Indication: SMOKING CESSATION THERAPY
     Dates: start: 20070124
  2. OXYCODONE HCL [Concomitant]
     Indication: BACK PAIN
  3. CLONAZEPAM [Concomitant]

REACTIONS (1)
  - DIARRHOEA [None]
